FAERS Safety Report 8599586-5 (Version None)
Quarter: 2012Q3

REPORT INFORMATION
  Report Type: 
  Country: None (occurrence: None)
  Receive Date: 20120816
  Receipt Date: 20120810
  Transmission Date: 20120928
  Serious: Yes (Death, Life-Threatening, Hospitalization)
  Sender: FDA-Public Use
  Company Number: DE-ACTELION-A-US2012-69865

PATIENT
  Age: 59 Year
  Sex: Female

DRUGS (4)
  1. VOLIBRIS [Concomitant]
  2. VENTAVIS [Suspect]
     Indication: PULMONARY ARTERIAL HYPERTENSION
     Dosage: UNK
     Route: 055
     Dates: start: 20110701, end: 20120730
  3. TREPROSTINIL [Suspect]
  4. REVATIO [Concomitant]

REACTIONS (6)
  - CARDIAC ARREST [None]
  - APALLIC SYNDROME [None]
  - RIGHT VENTRICULAR FAILURE [None]
  - RESUSCITATION [None]
  - FLUID RETENTION [None]
  - MULTI-ORGAN FAILURE [None]
